FAERS Safety Report 4273824-1 (Version None)
Quarter: 2004Q1

REPORT INFORMATION
  Report Type: 
  Country: None (occurrence: None)
  Receive Date: 20040120
  Receipt Date: 20040106
  Transmission Date: 20041129
  Serious: Yes (Death)
  Sender: FDA-Public Use
  Company Number: PHHO2004TR00496

PATIENT
  Age: 31 Year
  Sex: Female

DRUGS (2)
  1. NEORAL [Suspect]
     Indication: LIVER TRANSPLANT
     Dosage: 150 MG / DAY
     Route: 048
     Dates: start: 19940824
  2. STEROIDS NOS [Concomitant]
     Indication: LIVER TRANSPLANT
     Dosage: NOT REPORTED
     Route: 048
     Dates: start: 19940823

REACTIONS (3)
  - INFECTION [None]
  - PYREXIA [None]
  - SEPSIS [None]
